FAERS Safety Report 24261561 (Version 1)
Quarter: 2024Q3

REPORT INFORMATION
  Report Type: Report from Study
  Country: US (occurrence: US)
  Receive Date: 20240829
  Receipt Date: 20240829
  Transmission Date: 20241017
  Serious: Yes (Other)
  Sender: ROCHE
  Company Number: US-ROCHE-10000061992

PATIENT
  Age: 77 Year
  Sex: Male
  Weight: 85.28 kg

DRUGS (1)
  1. ERIVEDGE [Suspect]
     Active Substance: VISMODEGIB
     Indication: Basal cell carcinoma
     Route: 048
     Dates: end: 20240117

REACTIONS (2)
  - Melanocytic naevus [Unknown]
  - Ageusia [Recovered/Resolved]

NARRATIVE: CASE EVENT DATE: 20230601
